FAERS Safety Report 8111931-3 (Version None)
Quarter: 2012Q1

REPORT INFORMATION
  Report Type: 
  Country: None (occurrence: None)
  Receive Date: 20120203
  Receipt Date: 20110523
  Transmission Date: 20120608
  Serious: No
  Sender: FDA-Public Use
  Company Number: US-GLAXOSMITHKLINE-A0929782A

PATIENT
  Age: 77 Year
  Sex: Female

DRUGS (1)
  1. ARIXTRA [Suspect]
     Dosage: 5MG UNKNOWN
     Route: 042
     Dates: start: 20110201

REACTIONS (2)
  - FOREIGN BODY [None]
  - PRODUCT QUALITY ISSUE [None]
